FAERS Safety Report 12649640 (Version 2)
Quarter: 2021Q3

REPORT INFORMATION
  Report Type: Spontaneous
  Country: EG (occurrence: EG)
  Receive Date: 20160812
  Receipt Date: 20210805
  Transmission Date: 20211014
  Serious: Yes (Life-Threatening, Other)
  Sender: FDA-Public Use
  Company Number: PHHY2016EG110068

PATIENT
  Age: 3 Year
  Sex: Male

DRUGS (1)
  1. CEFTRIAXONE,LIDOCAINE [Suspect]
     Active Substance: CEFTRIAXONE
     Indication: GASTROINTESTINAL INFECTION
     Dosage: 500 MG, UNK
     Route: 030

REACTIONS (2)
  - Cardiac arrest [Recovered/Resolved]
  - Incorrect route of product administration [Unknown]
